FAERS Safety Report 24799114 (Version 1)
Quarter: 2025Q1

REPORT INFORMATION
  Report Type: Spontaneous
  Country: US (occurrence: US)
  Receive Date: 20250102
  Receipt Date: 20250102
  Transmission Date: 20250409
  Serious: No
  Sender: BAYER HEALTHCARE LLC
  Company Number: US-BAYER-2025A000084

PATIENT
  Age: 74 Year
  Sex: Female

DRUGS (3)
  1. CLARITIN [Suspect]
     Active Substance: LORATADINE
     Indication: Headache
     Route: 048
     Dates: start: 202411, end: 202412
  2. CLARITIN [Suspect]
     Active Substance: LORATADINE
     Indication: Eye pain
  3. CLARITIN [Suspect]
     Active Substance: LORATADINE
     Indication: Sinusitis

REACTIONS (1)
  - Drug effective for unapproved indication [None]
